FAERS Safety Report 19436866 (Version 7)
Quarter: 2022Q3

REPORT INFORMATION
  Report Type: Spontaneous
  Country: GB (occurrence: GB)
  Receive Date: 20210618
  Receipt Date: 20220811
  Transmission Date: 20221027
  Serious: Yes (Other)
  Sender: FDA-Public Use
  Company Number: GB-ROCHE-2808887

PATIENT
  Age: 46 Year
  Sex: Female

DRUGS (31)
  1. TAMOXIFEN [Suspect]
     Active Substance: TAMOXIFEN
     Indication: Breast cancer metastatic
     Dosage: 20 MILLIGRAM, ONCE A DAY (20 MG, 1X/DAY)
     Route: 048
     Dates: start: 20161010, end: 20190708
  2. DOCETAXEL [Suspect]
     Active Substance: DOCETAXEL
     Indication: Breast cancer metastatic
     Dosage: 120 MG, EVERY 3 WEEKS
     Route: 042
     Dates: start: 20160314, end: 20160810
  3. LETROZOLE [Suspect]
     Active Substance: LETROZOLE
     Indication: Breast cancer metastatic
     Dosage: 2.5 MICROGRAM, ONCE A DAY(2.5 UG, 1X/DAY)
     Route: 048
     Dates: start: 20190709
  4. PERTUZUMAB [Suspect]
     Active Substance: PERTUZUMAB
     Indication: Breast cancer metastatic
     Dosage: 840 MILLIGRAM (INITIAL LOADING DOSE)
     Route: 042
     Dates: start: 20160425
  5. PERTUZUMAB [Suspect]
     Active Substance: PERTUZUMAB
     Dosage: 840 MG, EVERY 3 WEEKS, INITIAL LOADING DOSE
     Route: 042
     Dates: start: 20160425, end: 20160425
  6. PERTUZUMAB [Suspect]
     Active Substance: PERTUZUMAB
     Dosage: 420 MG, EVERY 3 WEEKS, MAINTENANCE DOSE
     Route: 042
     Dates: start: 20160516
  7. TRASTUZUMAB [Suspect]
     Active Substance: TRASTUZUMAB
     Indication: Breast cancer metastatic
     Dosage: 600 MG, EVERY 3 WEEKS
     Route: 041
     Dates: start: 20160425
  8. TRASTUZUMAB [Suspect]
     Active Substance: TRASTUZUMAB
     Dosage: UNK
     Route: 058
  9. AMITRIPTYLINE [Concomitant]
     Active Substance: AMITRIPTYLINE
     Indication: Metastases to central nervous system
     Dosage: 10 MG, 1X/DAY
     Route: 048
     Dates: start: 20210407
  10. AMITRIPTYLINE [Concomitant]
     Active Substance: AMITRIPTYLINE
     Indication: Mouth ulceration
  11. BUTYLSCOPOLAMINE BROMIDE [Concomitant]
     Active Substance: BUTYLSCOPOLAMINE BROMIDE
     Indication: Abdominal pain
     Dosage: 20 MILLIGRAM, FOUR TIMES/DAY (20 MG, 4X/DAY)
     Route: 048
     Dates: start: 20160625
  12. BENZYDAMINE HYDROCHLORIDE [Concomitant]
     Active Substance: BENZYDAMINE HYDROCHLORIDE
     Indication: Product used for unknown indication
     Dosage: 10 MILLILITER, ONCE A DAY (10 ML, 4X/DAY)
     Route: 061
     Dates: start: 20160611
  13. CODEINE [Concomitant]
     Active Substance: CODEINE
     Indication: Phantom limb syndrome
     Dosage: 30 MILLIGRAM, TWO TIMES A DAY (30 MG, 2X/DAY)
     Route: 048
     Dates: start: 20160919
  14. DEXAMETHASONE [Concomitant]
     Active Substance: DEXAMETHASONE
     Indication: Metastases to central nervous system
     Dosage: 2 MG, 1X/DAY
     Route: 048
     Dates: start: 20191011, end: 20191125
  15. DEXAMETHASONE [Concomitant]
     Active Substance: DEXAMETHASONE
     Indication: Headache
     Dosage: 4 MG, 2X/DAY
     Route: 048
     Dates: start: 201909, end: 20191010
  16. DEXAMETHASONE [Concomitant]
     Active Substance: DEXAMETHASONE
     Dosage: 4 MG, 1X/DAY
     Route: 048
     Dates: start: 20200611
  17. DEXAMETHASONE [Concomitant]
     Active Substance: DEXAMETHASONE
     Dosage: 1.5 MG, 1X/DAY
     Route: 048
     Dates: start: 20191126, end: 20191203
  18. DEXAMETHASONE [Concomitant]
     Active Substance: DEXAMETHASONE
     Dosage: 0.5 MG, ALTERNATE DAY
     Route: 048
     Dates: start: 20191224, end: 202002
  19. DEXAMETHASONE [Concomitant]
     Active Substance: DEXAMETHASONE
     Dosage: 4 MG, 1X/DAY
     Route: 048
     Dates: start: 20210216
  20. DEXAMETHASONE [Concomitant]
     Active Substance: DEXAMETHASONE
     Dosage: 1 MG, ALTERNATE DAY
     Route: 048
     Dates: start: 20191204, end: 20191223
  21. DEXAMETHASONE [Concomitant]
     Active Substance: DEXAMETHASONE
     Dosage: 2 MILLIGRAM, ONCE A DAY
     Route: 048
     Dates: start: 20191125
  22. DEXAMETHASONE [Concomitant]
     Active Substance: DEXAMETHASONE
     Dosage: 2.5 MILLIGRAM, ONCE A DAY
     Route: 048
     Dates: start: 20191203
  23. DEXAMETHASONE [Concomitant]
     Active Substance: DEXAMETHASONE
     Dosage: 1 MILLIGRAM, ONCE A DAY
     Route: 048
     Dates: start: 20191223
  24. DOCUSATE [Concomitant]
     Active Substance: DOCUSATE
     Indication: Constipation
     Dosage: 100 MG
     Route: 048
     Dates: start: 20210226
  25. DOCUSATE [Concomitant]
     Active Substance: DOCUSATE
     Dosage: 100 MILLIGRAM
     Route: 048
     Dates: start: 20210228
  26. IBUPROFEN [Concomitant]
     Active Substance: IBUPROFEN
     Indication: Musculoskeletal pain
     Dosage: 200 MG, AS NEEDED
     Route: 048
     Dates: start: 20160612
  27. KADCYLA [Concomitant]
     Active Substance: ADO-TRASTUZUMAB EMTANSINE
     Indication: Product used for unknown indication
     Dosage: 220 MILLIGRAM (220 MG, MONTHLY)
     Route: 042
     Dates: start: 20200414
  28. POLYETHYLENE GLYCOL 3350\POTASSIUM CHLORIDE\SODIUM BICARBONATE\SODIUM [Concomitant]
     Active Substance: POLYETHYLENE GLYCOL 3350\POTASSIUM CHLORIDE\SODIUM BICARBONATE\SODIUM CHLORIDE
     Indication: Product used for unknown indication
     Dosage: UNK, 1X/DAY
     Route: 048
     Dates: start: 20160627
  29. OMEPRAZOLE [Concomitant]
     Active Substance: OMEPRAZOLE
     Indication: Metastases to central nervous system
     Dosage: 20 MG, 2X/DAY
     Route: 048
     Dates: start: 201909
  30. MORPHINE SULFATE [Concomitant]
     Active Substance: MORPHINE SULFATE
     Indication: Metastases to central nervous system
     Dosage: UNK, AS NEEDED
     Route: 048
     Dates: start: 20210311
  31. ACETAMINOPHEN [Concomitant]
     Active Substance: ACETAMINOPHEN
     Indication: Musculoskeletal pain
     Dosage: 1 GRAM, AS NECESSARY
     Route: 048
     Dates: start: 20161206

REACTIONS (12)
  - Constipation [Recovered/Resolved]
  - Pulmonary mass [Recovered/Resolved]
  - Acarodermatitis [Recovered/Resolved]
  - Cellulitis [Recovered/Resolved]
  - Fatigue [Recovered/Resolved]
  - Headache [Recovered/Resolved]
  - Incorrect route of product administration [Unknown]
  - Lymphoedema [Recovered/Resolved]
  - Metastases to central nervous system [Recovered/Resolved]
  - Skin infection [Recovered/Resolved]
  - Urinary tract infection [Recovered/Resolved]
  - Vision blurred [Recovered/Resolved]

NARRATIVE: CASE EVENT DATE: 20161001
